FAERS Safety Report 8946042 (Version 1)
Quarter: 2012Q4

REPORT INFORMATION
  Report Type: 
  Country: IT (occurrence: IT)
  Receive Date: 20121205
  Receipt Date: 20121205
  Transmission Date: 20130627
  Serious: Yes (Other)
  Sender: FDA-Public Use
  Company Number: IT-UCBSA-072274

PATIENT
  Sex: Female

DRUGS (6)
  1. LEVETIRACETAM [Suspect]
     Indication: EPILEPSY
  2. VALPROATE [Suspect]
     Indication: EPILEPSY
  3. ETHOSUXIMIDE [Suspect]
     Indication: EPILEPSY
  4. CLOBAZAM [Suspect]
     Indication: EPILEPSY
  5. PREDNISONE [Suspect]
     Indication: EPILEPSY
  6. SULTHIAME [Suspect]
     Indication: EPILEPSY

REACTIONS (6)
  - Abnormal behaviour [Unknown]
  - Psychomotor hyperactivity [Unknown]
  - Attention deficit/hyperactivity disorder [Unknown]
  - Unevaluable event [Unknown]
  - Convulsion [Unknown]
  - Electroencephalogram abnormal [Unknown]
